FAERS Safety Report 19446679 (Version 1)
Quarter: 2021Q2

REPORT INFORMATION
  Report Type: Spontaneous
  Country: US (occurrence: US)
  Receive Date: 20210622
  Receipt Date: 20210622
  Transmission Date: 20210717
  Serious: Yes (Hospitalization)
  Sender: FDA-Public Use
  Company Number: US-TEVA-2021-US-1924642

PATIENT
  Age: 73 Year
  Sex: Male

DRUGS (13)
  1. GENTAMICIN. [Suspect]
     Active Substance: GENTAMICIN
     Indication: ENTEROCOCCAL INFECTION
  2. TIGECYCLINE. [Suspect]
     Active Substance: TIGECYCLINE
     Indication: ENTEROCOCCAL INFECTION
     Route: 042
  3. LINEZOLID. [Suspect]
     Active Substance: LINEZOLID
     Indication: PSEUDOMONAS INFECTION
     Route: 048
  4. LINEZOLID. [Suspect]
     Active Substance: LINEZOLID
     Indication: ENTEROCOCCAL INFECTION
  5. DAPTOMYCIN. [Suspect]
     Active Substance: DAPTOMYCIN
     Indication: ENTEROCOCCAL INFECTION
     Route: 042
  6. TIGECYCLINE. [Suspect]
     Active Substance: TIGECYCLINE
     Indication: ENTEROCOCCAL INFECTION
  7. ORITAVANCIN. [Suspect]
     Active Substance: ORITAVANCIN
     Indication: ENTEROCOCCAL INFECTION
     Dosage: A DOSE OF 1200 MG EVERY OTHER DAY FOR 3 DOSES
     Route: 041
  8. GENTAMICIN. [Suspect]
     Active Substance: GENTAMICIN
     Indication: ENTEROCOCCAL INFECTION
     Route: 065
  9. LINEZOLID. [Suspect]
     Active Substance: LINEZOLID
     Indication: ENTEROCOCCAL INFECTION
  10. ORITAVANCIN. [Suspect]
     Active Substance: ORITAVANCIN
     Indication: ENTEROCOCCAL INFECTION
     Dosage: SUBSEQUENTLY ONCE WEEKLY FOR 6 WEEKS
     Route: 041
  11. ORITAVANCIN. [Suspect]
     Active Substance: ORITAVANCIN
     Route: 041
  12. DAPTOMYCIN. [Suspect]
     Active Substance: DAPTOMYCIN
     Indication: ENTEROCOCCAL INFECTION
  13. LINEZOLID. [Suspect]
     Active Substance: LINEZOLID
     Indication: DEVICE RELATED INFECTION

REACTIONS (11)
  - Thrombocytopenia [Recovered/Resolved]
  - Mental status changes [Recovered/Resolved]
  - False positive investigation result [Unknown]
  - Liver function test abnormal [Recovered/Resolved]
  - Off label use [Unknown]
  - Laboratory test interference [Unknown]
  - Nephropathy toxic [Unknown]
  - Nausea [Recovering/Resolving]
  - Decreased appetite [Recovering/Resolving]
  - Hyperlactacidaemia [Recovered/Resolved]
  - Pathogen resistance [Recovered/Resolved]
